FAERS Safety Report 4521805-2 (Version None)
Quarter: 2004Q4

REPORT INFORMATION
  Report Type: 
  Country: None (occurrence: None)
  Receive Date: 20041209
  Receipt Date: 20041201
  Transmission Date: 20050328
  Serious: Yes (Other)
  Sender: FDA-Public Use
  Company Number: US-JNJFOC-20041200912

PATIENT
  Age: 73 Year
  Sex: Male
  Weight: 79.38 kg

DRUGS (6)
  1. TOPAMAX [Suspect]
     Route: 049
  2. TOPAMAX [Suspect]
     Indication: NEUROPATHIC PAIN
     Route: 049
  3. MEVACOR [Concomitant]
  4. ISOSORBIDE [Concomitant]
  5. NORVASC [Concomitant]
  6. TOPOROL [Concomitant]

REACTIONS (7)
  - ABASIA [None]
  - ASTHENIA [None]
  - DIFFICULTY IN WALKING [None]
  - GAIT DISTURBANCE [None]
  - MOVEMENT DISORDER [None]
  - VISION BLURRED [None]
  - WEIGHT DECREASED [None]
